FAERS Safety Report 8473888-5 (Version None)
Quarter: 2012Q2

REPORT INFORMATION
  Report Type: 
  Country: None (occurrence: None)
  Receive Date: 20120628
  Receipt Date: 20120117
  Transmission Date: 20120825
  Serious: Yes (Death)
  Sender: FDA-Public Use
  Company Number: US-MYLANLABS-2012S1001147

PATIENT
  Age: 77 Year
  Sex: Male

DRUGS (8)
  1. COMTAN [Concomitant]
  2. BENZTROPINE MESYLATE [Concomitant]
  3. QUETIAPINE [Concomitant]
  4. OLANZAPINE [Concomitant]
  5. SERTRALINE HYDROCHLORIDE [Concomitant]
  6. CLOZAPINE [Suspect]
     Route: 048
  7. PLAVIX [Concomitant]
  8. LISINOPRIL [Concomitant]

REACTIONS (1)
  - CARDIAC DISORDER [None]
